FAERS Safety Report 5187804-5 (Version None)
Quarter: 2006Q4

REPORT INFORMATION
  Report Type: 
  Country: None (occurrence: None)
  Receive Date: 20061212
  Receipt Date: 20061128
  Transmission Date: 20070319
  Serious: Yes (Hospitalization)
  Sender: FDA-Public Use
  Company Number: 2006SP007270

PATIENT
  Age: 49 Year
  Sex: Male
  Weight: 106 kg

DRUGS (13)
  1. TEMODAR [Suspect]
     Indication: METASTATIC MALIGNANT MELANOMA
     Dosage: 180 MG QD PO
     Route: 048
     Dates: start: 20060622, end: 20061113
  2. THALOMID [Suspect]
     Indication: METASTATIC MALIGNANT MELANOMA
     Dosage: 450 MG QD PO
     Route: 048
     Dates: start: 20060622, end: 20061113
  3. LOMUSTINE [Suspect]
     Indication: METASTATIC MALIGNANT MELANOMA
     Dosage: 70 MG PO
     Route: 048
     Dates: start: 20060622, end: 20060622
  4. LOMUSTINE [Suspect]
     Indication: METASTATIC MALIGNANT MELANOMA
     Dosage: 70 MG PO
     Route: 048
     Dates: start: 20060720, end: 20060720
  5. LOMUSTINE [Suspect]
     Indication: METASTATIC MALIGNANT MELANOMA
     Dosage: 70 MG PO
     Route: 048
     Dates: start: 20060817, end: 20060817
  6. LOMUSTINE [Suspect]
     Indication: METASTATIC MALIGNANT MELANOMA
     Dosage: 70 MG PO
     Route: 048
     Dates: start: 20060914, end: 20060914
  7. LOMUSTINE [Suspect]
     Indication: METASTATIC MALIGNANT MELANOMA
     Dosage: 70 MG PO
     Route: 048
     Dates: start: 20061012, end: 20061012
  8. LOMUSTINE [Suspect]
     Indication: METASTATIC MALIGNANT MELANOMA
     Dosage: 70 MG PO
     Route: 048
     Dates: start: 20061109, end: 20061109
  9. PAXIL [Concomitant]
  10. SENOKOT [Concomitant]
  11. OXYCODONE HCL [Concomitant]
  12. ASCORBIC ACID [Concomitant]
  13. ROBITUSSIN DM [Concomitant]

REACTIONS (2)
  - CARDIOMEGALY [None]
  - PNEUMONIA [None]
